FAERS Safety Report 15787499 (Version 2)
Quarter: 2019Q1

REPORT INFORMATION
  Report Type: Report from Study
  Country: US (occurrence: US)
  Receive Date: 20190103
  Receipt Date: 20190223
  Transmission Date: 20190417
  Serious: Yes (Hospitalization, Disabling)
  Sender: FDA-Public Use
  Company Number: US-ACTELION-A-NJ2015-123981

PATIENT
  Age: 62 Year
  Sex: Female

DRUGS (2)
  1. OPSUMIT [Suspect]
     Active Substance: MACITENTAN
     Indication: PULMONARY HYPERTENSION
     Dosage: 10 MG, QD
     Route: 048
     Dates: start: 20180212
  2. STELARA [Suspect]
     Active Substance: USTEKINUMAB
     Indication: PSORIASIS
     Dosage: 45 MG, Q12 WEEKS
     Route: 058
     Dates: start: 20180424

REACTIONS (13)
  - Sleep disorder [Unknown]
  - Product dose omission [Recovered/Resolved]
  - Allergic bronchitis [Not Recovered/Not Resolved]
  - Spinal column stenosis [Unknown]
  - Scleroderma [Not Recovered/Not Resolved]
  - Dyspnoea [Unknown]
  - Arthritis [Not Recovered/Not Resolved]
  - Asthma [Recovered/Resolved]
  - Gangrene [Not Recovered/Not Resolved]
  - Fatigue [Unknown]
  - Gastrooesophageal reflux disease [Not Recovered/Not Resolved]
  - Hospitalisation [Unknown]
  - Pneumothorax [Unknown]

NARRATIVE: CASE EVENT DATE: 2018
